FAERS Safety Report 8339612-1 (Version None)
Quarter: 2012Q2

REPORT INFORMATION
  Report Type: 
  Country: None (occurrence: None)
  Receive Date: 20120507
  Receipt Date: 20110824
  Transmission Date: 20120825
  Serious: No
  Sender: FDA-Public Use
  Company Number: US-TEVA-2011002792

PATIENT
  Sex: Male
  Weight: 145.28 kg

DRUGS (3)
  1. LISINOPRIL AND HYDROCHLOROTHIAZIDE [Concomitant]
     Dates: start: 20080101
  2. NUVIGIL [Suspect]
     Indication: SLEEP APNOEA SYNDROME
     Dosage: 250 MILLIGRAM;
     Route: 048
     Dates: start: 20110523
  3. BUPRENORPHINE [Concomitant]
     Dates: start: 20100101

REACTIONS (2)
  - DRUG INEFFECTIVE [None]
  - SOMNOLENCE [None]
